FAERS Safety Report 16336411 (Version 2)
Quarter: 2020Q4

REPORT INFORMATION
  Report Type: Report from Study
  Country: US (occurrence: US)
  Receive Date: 20190521
  Receipt Date: 20201208
  Transmission Date: 20210113
  Serious: No
  Sender: FDA-Public Use
  Company Number: US-ELI_LILLY_AND_COMPANY-US201905006008

PATIENT
  Sex: Male

DRUGS (5)
  1. HUMULIN R [Suspect]
     Active Substance: INSULIN HUMAN
     Dosage: 40 INTERNATIONAL UNIT, EACH EVENING
     Route: 058
  2. HUMULIN R U-500 KWIKPEN [Suspect]
     Active Substance: INSULIN HUMAN
     Indication: TYPE 2 DIABETES MELLITUS
     Dosage: UNK UNK, UNKNOWN
     Route: 065
  3. HUMULIN R [Suspect]
     Active Substance: INSULIN HUMAN
     Indication: TYPE 2 DIABETES MELLITUS
     Dosage: 70 INTERNATIONAL UNIT, EACH MORNING
     Route: 058
  4. TRULICITY [Suspect]
     Active Substance: DULAGLUTIDE
     Indication: TYPE 2 DIABETES MELLITUS
     Dosage: 1.5 MG, UNKNOWN
     Route: 058
  5. HUMULIN R [Suspect]
     Active Substance: INSULIN HUMAN
     Dosage: 50 U, BID
     Route: 058
     Dates: start: 20200519

REACTIONS (6)
  - Carpal tunnel syndrome [Not Recovered/Not Resolved]
  - Nerve injury [Not Recovered/Not Resolved]
  - Sleep apnoea syndrome [Not Recovered/Not Resolved]
  - Neuropathy peripheral [Not Recovered/Not Resolved]
  - Incorrect dose administered [Not Recovered/Not Resolved]
  - Product dose omission issue [Not Recovered/Not Resolved]
